FAERS Safety Report 8623288-X (Version None)
Quarter: 2012Q3

REPORT INFORMATION
  Report Type: 
  Country: None (occurrence: None)
  Receive Date: 20120824
  Receipt Date: 20120824
  Transmission Date: 20120928
  Serious: Yes (Other)
  Sender: FDA-Public Use
  Company Number: None

PATIENT
  Sex: Male
  Weight: 117.9352 kg

DRUGS (2)
  1. NORCO 10/335 [Concomitant]
  2. GABAPENTIN [Suspect]
     Dosage: PO QHS
     Route: 048

REACTIONS (1)
  - FLANK PAIN [None]
